FAERS Safety Report 16288951 (Version 2)
Quarter: 2019Q2

REPORT INFORMATION
  Report Type: Spontaneous
  Country: DE (occurrence: DE)
  Receive Date: 20190509
  Receipt Date: 20190527
  Transmission Date: 20190711
  Serious: Yes (Life-Threatening, Hospitalization, Other)
  Sender: FDA-Public Use
  Company Number: DE-009507513-2004-03-1914

PATIENT
  Age: 58 Year
  Sex: Female
  Weight: 80 kg

DRUGS (5)
  1. NOCTAMID [Suspect]
     Active Substance: LORMETAZEPAM
     Indication: NEUROSIS
     Dosage: 4 MG, 4 TABLETS AT ONCE
     Route: 048
     Dates: start: 20040328, end: 20040328
  2. NOCTAMID [Suspect]
     Active Substance: LORMETAZEPAM
     Indication: SUICIDE ATTEMPT
  3. AERIUS (DESLORATADINE) [Suspect]
     Active Substance: DESLORATADINE
     Indication: NEUROSIS
  4. AERIUS (DESLORATADINE) [Suspect]
     Active Substance: DESLORATADINE
     Indication: SUICIDE ATTEMPT
     Dosage: 19 TABLETS, ONCE
     Route: 048
     Dates: start: 20040328, end: 20040328
  5. ALCOHOL. [Suspect]
     Active Substance: ALCOHOL
     Indication: SUICIDE ATTEMPT
     Dosage: UNKNOWN AMOUNT
     Route: 048

REACTIONS (5)
  - Somnolence [Recovered/Resolved]
  - Anterograde amnesia [Recovered/Resolved]
  - Disorientation [Recovered/Resolved]
  - Intentional overdose [Recovered/Resolved]
  - Suicide attempt [Recovered/Resolved]

NARRATIVE: CASE EVENT DATE: 20040328
